FAERS Safety Report 15783082 (Version 3)
Quarter: 2020Q1

REPORT INFORMATION
  Report Type: Spontaneous
  Country: IE (occurrence: IE)
  Receive Date: 20190102
  Receipt Date: 20200323
  Transmission Date: 20200409
  Serious: Yes (Hospitalization, Other)
  Sender: FDA-Public Use
  Company Number: IE-PFIZER INC-2018533438

PATIENT
  Age: 32 Year
  Sex: Female

DRUGS (6)
  1. SYNAREL [Suspect]
     Active Substance: NAFARELIN ACETATE
     Indication: IN VITRO FERTILISATION
     Dosage: ONCE EVERY 12 HOURS
     Route: 045
     Dates: start: 20181019, end: 20181029
  2. OVITRELLE [Suspect]
     Active Substance: CHORIOGONADOTROPIN ALFA
     Indication: OVULATION INDUCTION
     Dosage: 250 UG, UNK
     Dates: start: 20181030
  3. VAGIFEM [Suspect]
     Active Substance: ESTRADIOL
     Indication: IN VITRO FERTILISATION
     Dosage: UNK
     Route: 067
     Dates: start: 20181019, end: 20181029
  4. PUREGON [FOLLITROPIN BETA] [Suspect]
     Active Substance: FOLLITROPIN
     Indication: IN VITRO FERTILISATION
     Dosage: 250 IU, ONCE EVERY 24 HOURS
     Route: 058
     Dates: start: 20181019, end: 20181029
  5. ESTRADIOL HEMIHYDRATE [Suspect]
     Active Substance: ESTRADIOL HEMIHYDRATE
     Dosage: ONCE EVERY 12 HOURS
  6. GLUCOPHAGE [Concomitant]
     Active Substance: METFORMIN HYDROCHLORIDE
     Indication: POLYCYSTIC OVARIES
     Dosage: 500 MG,ONCE EVERY 8 HOURS
     Route: 048

REACTIONS (6)
  - Ovarian hyperstimulation syndrome [Recovered/Resolved]
  - Abdominal distension [Recovered/Resolved]
  - Dyspnoea [Recovered/Resolved]
  - Malaise [Recovered/Resolved]
  - Nausea [Recovered/Resolved]
  - Pelvic fluid collection [Unknown]

NARRATIVE: CASE EVENT DATE: 20181115
